FAERS Safety Report 4301112-3 (Version None)
Quarter: 2004Q1

REPORT INFORMATION
  Report Type: 
  Country: None (occurrence: None)
  Receive Date: 20040218
  Receipt Date: 20040203
  Transmission Date: 20041129
  Serious: Yes (Life-Threatening)
  Sender: FDA-Public Use
  Company Number: BRO-006966

PATIENT
  Age: 44 Year
  Sex: Male

DRUGS (10)
  1. IOPAMIDOL-300 [Suspect]
     Indication: COMPUTERISED TOMOGRAM
     Dosage: 80 ML IV
     Route: 042
     Dates: start: 20031204, end: 20031204
  2. IOPAMIDOL-300 [Suspect]
     Indication: OESOPHAGEAL CARCINOMA
     Dosage: 80 ML IV
     Route: 042
     Dates: start: 20031204, end: 20031204
  3. NOVAMIN (PROCHLORPERAZINE) [Concomitant]
  4. VOLTAREN-XR [Concomitant]
  5. MS CONTIN [Concomitant]
  6. ALLOID,              (SODIUM ALGINATE) [Concomitant]
  7. PONTAL,          (MEFENAMIC ACID) [Concomitant]
  8. CATLEP          (INDOMETACIN) [Concomitant]
  9. HALCION [Concomitant]
  10. PURSENNID          (SENNA LEAF) [Concomitant]

REACTIONS (4)
  - ABASIA [None]
  - FEELING HOT [None]
  - INFECTION [None]
  - STEVENS-JOHNSON SYNDROME [None]
